FAERS Safety Report 25044519 (Version 2)
Quarter: 2025Q1

REPORT INFORMATION
  Report Type: Report from Study
  Country: US (occurrence: US)
  Receive Date: 20250306
  Receipt Date: 20250331
  Transmission Date: 20250408
  Serious: Yes (Hospitalization)
  Sender: SYNDAX
  Company Number: US-SYNDAX PHARMACEUTICALS, INC.-2025US000178

PATIENT
  Sex: Female
  Weight: 54.689 kg

DRUGS (1)
  1. REVUFORJ [Suspect]
     Active Substance: REVUMENIB CITRATE
     Indication: Acute monocytic leukaemia
     Dosage: 270 MILLIGRAM (110 MG AND 160 MG), BID
     Route: 048
     Dates: start: 20250220

REACTIONS (5)
  - Mental status changes [Unknown]
  - Platelet count decreased [Unknown]
  - Product dose omission issue [Unknown]
  - Hypotension [Unknown]
  - Nausea [Unknown]
